FAERS Safety Report 12088114 (Version 3)
Quarter: 2016Q3

REPORT INFORMATION
  Report Type: Report from Study
  Country: ES (occurrence: ES)
  Receive Date: 20160217
  Receipt Date: 20160706
  Transmission Date: 20161109
  Serious: Yes (Hospitalization)
  Sender: FDA-Public Use
  Company Number: ES-ROCHE-1706891

PATIENT
  Age: 46 Year
  Sex: Male
  Weight: 74 kg

DRUGS (2)
  1. RITUXIMAB [Suspect]
     Active Substance: RITUXIMAB
     Indication: B-CELL LYMPHOMA
     Dosage: ON 18/JAN/2016, RECEIVED LAST DOSE PRIOR TO EVENT ONSET
     Route: 042
     Dates: start: 20160104
  2. DUVELISIB [Suspect]
     Active Substance: DUVELISIB
     Indication: B-CELL LYMPHOMA
     Dosage: ON 22/JAN/2016, RECEIVED LAST DOSE PRIOR TO EVENT ONSET
     Route: 065
     Dates: start: 20160101

REACTIONS (1)
  - Hepatitis [Recovered/Resolved]

NARRATIVE: CASE EVENT DATE: 20160123
